FAERS Safety Report 9355287 (Version 1)
Quarter: 2013Q2

REPORT INFORMATION
  Report Type: Spontaneous
  Country: US (occurrence: None)
  Receive Date: 20130618
  Receipt Date: 20130618
  Transmission Date: 20140414
  Serious: Yes (Hospitalization)
  Sender: FDA-Public Use
  Company Number: None

PATIENT
  Age: 74 Year
  Sex: Male

DRUGS (11)
  1. ASPIRIN [Suspect]
     Indication: CEREBROVASCULAR ACCIDENT
     Route: 048
  2. ACIDOPHILUS PROBIOTIC [Concomitant]
  3. GAVISCON [Concomitant]
  4. AMLODIPINE [Concomitant]
  5. NATURES TEARS [Concomitant]
  6. TUSSIN COUGH COD FLU [Concomitant]
  7. FLUOXETINE [Concomitant]
  8. LEVETIRACTAM [Concomitant]
  9. LORAZEPAM [Concomitant]
  10. CENTRUM [Concomitant]
  11. NYSTATIN [Concomitant]

REACTIONS (1)
  - Gastrointestinal haemorrhage [None]
